FAERS Safety Report 20327535 (Version 1)
Quarter: 2022Q1

REPORT INFORMATION
  Report Type: Spontaneous
  Country: DE (occurrence: DE)
  Receive Date: 20220112
  Receipt Date: 20220112
  Transmission Date: 20220423
  Serious: Yes (Congenital Anomaly, Other)
  Sender: FDA-Public Use
  Company Number: DE-EMBRYOTOX-202013851

PATIENT
  Age: 0 Year
  Sex: Male

DRUGS (5)
  1. PREDNISOLONE [Suspect]
     Active Substance: PREDNISOLONE
     Indication: Rheumatoid arthritis
     Dosage: 10 [MG / D (UP TO 5)] , ADDITIONAL INFO : 9.2. - 37.5. GESTATIONAL WEEK
     Route: 064
     Dates: end: 20210717
  2. SULFASALAZINE DELAYED-RELEASE [Suspect]
     Active Substance: SULFASALAZINE
     Indication: Rheumatoid arthritis
     Dosage: 2000 MILLIGRAM DAILY; 2000 [MG/D (4X500) ] , ADDITIONAL INFO : 0. - 37.5. GESTATIONAL WEEK
     Route: 064
     Dates: end: 20210717
  3. COMIRNATY [Concomitant]
     Active Substance: TOZINAMERAN
     Indication: COVID-19 immunisation
     Route: 063
  4. COMIRNATY [Concomitant]
     Active Substance: TOZINAMERAN
     Indication: COVID-19 immunisation
     Route: 064
     Dates: start: 20210519, end: 20210519
  5. BOOSTRIX [Concomitant]
     Active Substance: TETANUS TOXOID, REDUCED DIPHTHERIA TOXOID AND ACELLULAR PERTUSSIS VACCINE, ADSORBED ANTIGENS
     Indication: Immunisation
     Dosage: ADDITIONAL INFO : 31.1. - 31.1. GESTATIONAL WEEK
     Route: 064
     Dates: start: 20210601, end: 20210601

REACTIONS (4)
  - Congenital megaureter [Unknown]
  - Pyelocaliectasis [Unknown]
  - Ureteric stenosis [Unknown]
  - Foetal exposure during pregnancy [Unknown]

NARRATIVE: CASE EVENT DATE: 20201026
